FAERS Safety Report 9639434 (Version 8)
Quarter: 2015Q3

REPORT INFORMATION
  Report Type: Report from Study
  Country: US (occurrence: US)
  Receive Date: 20131022
  Receipt Date: 20150724
  Transmission Date: 20151125
  Serious: Yes (Hospitalization, Other)
  Sender: FDA-Public Use
  Company Number: US-ROCHE-1209537

PATIENT
  Age: 28 Year
  Sex: Female
  Weight: 49.03 kg

DRUGS (24)
  1. OMALIZUMAB [Suspect]
     Active Substance: OMALIZUMAB
     Indication: ECZEMA
     Route: 058
     Dates: start: 20130322
  2. OMALIZUMAB [Suspect]
     Active Substance: OMALIZUMAB
     Indication: DERMATITIS ALLERGIC
     Route: 058
     Dates: start: 20130502
  3. OMALIZUMAB [Suspect]
     Active Substance: OMALIZUMAB
     Route: 058
     Dates: start: 20130523, end: 20130709
  4. ADVAIR HFA [Concomitant]
     Active Substance: FLUTICASONE PROPIONATE\SALMETEROL XINAFOATE
     Indication: ASTHMA
  5. SPIRULINA [Concomitant]
     Active Substance: SPIRULINA
     Route: 048
  6. TYLENOL [Concomitant]
     Active Substance: ACETAMINOPHEN
     Indication: PAIN
     Dosage: AS REQUIRED
     Route: 048
  7. DOXEPIN [Concomitant]
     Active Substance: DOXEPIN
  8. FISH OIL [Concomitant]
     Active Substance: FISH OIL
     Dosage: DAILY
     Route: 048
  9. OMALIZUMAB [Suspect]
     Active Substance: OMALIZUMAB
     Route: 058
     Dates: start: 20130620
  10. BENADRYL [Concomitant]
     Active Substance: DIPHENHYDRAMINE HYDROCHLORIDE
     Indication: HYPERSENSITIVITY
     Dosage: AS REQUIRED
     Route: 048
  11. ZYRTEC [Concomitant]
     Active Substance: CETIRIZINE HYDROCHLORIDE
     Indication: HYPERSENSITIVITY
     Dosage: AS REQUIRED
     Route: 048
  12. PREDNISONE. [Concomitant]
     Active Substance: PREDNISONE
     Indication: DERMATITIS ALLERGIC
     Dosage: AS REQUIRED
     Route: 048
  13. OMALIZUMAB [Suspect]
     Active Substance: OMALIZUMAB
     Route: 058
     Dates: start: 20130709
  14. TYLENOL [Concomitant]
     Active Substance: ACETAMINOPHEN
     Indication: DERMATITIS ALLERGIC
  15. DOCQLACE [Concomitant]
     Active Substance: DOCUSATE SODIUM
  16. OMALIZUMAB [Suspect]
     Active Substance: OMALIZUMAB
     Indication: ASTHMA
     Dosage: DATE OF MOST RECENT DOSE: 22/MAR/2013
     Route: 058
     Dates: start: 20130304
  17. PROAIR HFA [Concomitant]
     Active Substance: ALBUTEROL SULFATE
     Indication: ASTHMA
  18. IBUPROFEN. [Concomitant]
     Active Substance: IBUPROFEN
     Indication: PAIN
  19. OMALIZUMAB [Suspect]
     Active Substance: OMALIZUMAB
     Route: 058
     Dates: start: 20130606
  20. OMEGA 3 [Concomitant]
     Active Substance: OMEGA-3 FATTY ACIDS
  21. PREDNISONE. [Concomitant]
     Active Substance: PREDNISONE
     Indication: DERMATITIS ALLERGIC
  22. HYDROXYZINE [Concomitant]
     Active Substance: HYDROXYZINE\HYDROXYZINE HYDROCHLORIDE
     Indication: DERMATITIS ALLERGIC
  23. CLOBETASOL [Concomitant]
     Active Substance: CLOBETASOL
     Indication: DERMATITIS ALLERGIC
     Route: 061
  24. VICODIN [Concomitant]
     Active Substance: ACETAMINOPHEN\HYDROCODONE BITARTRATE
     Indication: PAIN

REACTIONS (6)
  - Exposure during pregnancy [Unknown]
  - Anxiety [Unknown]
  - Prolonged labour [Recovered/Resolved]
  - Eczema [Recovered/Resolved]
  - Staphylococcal infection [Unknown]
  - Osteopenia [Unknown]

NARRATIVE: CASE EVENT DATE: 201304
